FAERS Safety Report 8611668-8 (Version None)
Quarter: 2012Q3

REPORT INFORMATION
  Report Type: 
  Country: None (occurrence: None)
  Receive Date: 20120822
  Receipt Date: 20120820
  Transmission Date: 20120928
  Serious: Yes (Other)
  Sender: FDA-Public Use
  Company Number: US-PFIZER INC-2012134392

PATIENT
  Age: 79 Year
  Sex: Female
  Weight: 81.633 kg

DRUGS (6)
  1. RALOXIFENE HYDROCHLORIDE [Concomitant]
     Dosage: UNK, EVERY OTHER DAY
  2. DIOVAN [Concomitant]
     Dosage: UNK, DAILY
  3. LYRICA [Suspect]
     Indication: NEUROPATHY PERIPHERAL
     Dosage: 100 MG, 2X/DAY
     Route: 048
     Dates: start: 20100101
  4. LYRICA [Suspect]
     Dosage: 200 MG, 2X/DAY
     Route: 048
  5. TRIAMTERENE AND HYDROCHLOROTHIAZIDE [Concomitant]
     Dosage: UNK, DAILY
  6. AMBIEN [Concomitant]
     Dosage: UNK, DAILY

REACTIONS (1)
  - WEIGHT INCREASED [None]
